FAERS Safety Report 25326184 (Version 2)
Quarter: 2025Q2

REPORT INFORMATION
  Report Type: Spontaneous
  Country: DE (occurrence: DE)
  Receive Date: 20250516
  Receipt Date: 20250528
  Transmission Date: 20250716
  Serious: Yes (Life-Threatening)
  Sender: ELI LILLY AND COMPANY
  Company Number: DE-ELI_LILLY_AND_COMPANY-DE202505012650

PATIENT
  Age: 51 Year
  Sex: Female

DRUGS (2)
  1. MOUNJARO [Suspect]
     Active Substance: TIRZEPATIDE
     Indication: Weight control
     Route: 058
  2. MOUNJARO [Suspect]
     Active Substance: TIRZEPATIDE
     Indication: Weight control
     Route: 058

REACTIONS (1)
  - Loss of consciousness [Recovered/Resolved]

NARRATIVE: CASE EVENT DATE: 20250501
